FAERS Safety Report 4523198-3 (Version None)
Quarter: 2004Q4

REPORT INFORMATION
  Report Type: 
  Country: None (occurrence: None)
  Receive Date: 20041207
  Receipt Date: 20041207
  Transmission Date: 20050328
  Serious: Yes (Life-Threatening)
  Sender: FDA-Public Use
  Company Number: None

PATIENT
  Age: 31 Year
  Sex: Male
  Weight: 83.9154 kg

DRUGS (3)
  1. PROZAC [Suspect]
     Indication: ANXIETY
     Dosage: 20 MG / 5 ML 2 TSP Q AM
  2. PROZAC [Suspect]
     Indication: SEVERE MENTAL RETARDATION
     Dosage: 20 MG / 5 ML 2 TSP Q AM
  3. PROZAC [Suspect]
     Indication: STEREOTYPIC MOVEMENT DISORDER
     Dosage: 20 MG / 5 ML 2 TSP Q AM

REACTIONS (7)
  - ABNORMAL BEHAVIOUR [None]
  - AGGRESSION [None]
  - AGITATION [None]
  - CONDITION AGGRAVATED [None]
  - DRUG INEFFECTIVE [None]
  - PHARMACEUTICAL PRODUCT COMPLAINT [None]
  - SELF INJURIOUS BEHAVIOUR [None]
